FAERS Safety Report 20392348 (Version 8)
Quarter: 2022Q3

REPORT INFORMATION
  Report Type: Report from Study
  Country: US (occurrence: US)
  Receive Date: 20220128
  Receipt Date: 20220921
  Transmission Date: 20221026
  Serious: No
  Sender: FDA-Public Use
  Company Number: US-NOVARTISTESTPH-NVSC2022US017756

PATIENT
  Age: 53 Year
  Sex: Female
  Weight: 81.65 kg

DRUGS (4)
  1. KESIMPTA [Suspect]
     Active Substance: OFATUMUMAB
     Indication: Product used for unknown indication
     Dosage: 20 MG, QMO
     Route: 058
     Dates: start: 20220102
  2. KESIMPTA [Suspect]
     Active Substance: OFATUMUMAB
     Dosage: UNK
     Route: 065
     Dates: start: 20220109
  3. KESIMPTA [Suspect]
     Active Substance: OFATUMUMAB
     Dosage: UNK
     Route: 065
     Dates: start: 20220116
  4. PREDNISONE [Concomitant]
     Active Substance: PREDNISONE
     Indication: Product used for unknown indication
     Dosage: UNK
     Route: 065

REACTIONS (15)
  - Pain in extremity [Unknown]
  - Pain [Recovered/Resolved]
  - Blister [Recovered/Resolved]
  - Neuralgia [Recovered/Resolved]
  - Herpes zoster [Recovered/Resolved]
  - Hypoaesthesia [Unknown]
  - Headache [Unknown]
  - Pruritus [Recovered/Resolved]
  - Nausea [Recovered/Resolved]
  - Fatigue [Recovered/Resolved]
  - Chills [Recovered/Resolved]
  - Arthralgia [Unknown]
  - COVID-19 [Unknown]
  - Bronchitis [Unknown]
  - Tonsillitis [Unknown]

NARRATIVE: CASE EVENT DATE: 20220102
